FAERS Safety Report 5130666-2 (Version None)
Quarter: 2006Q4

REPORT INFORMATION
  Report Type: 
  Country: None (occurrence: None)
  Receive Date: 20061013
  Receipt Date: 20060928
  Transmission Date: 20070319
  Serious: Yes (Other)
  Sender: FDA-Public Use
  Company Number: US200607004836

PATIENT
  Age: 81 Year
  Sex: Female
  Weight: 49.9 kg

DRUGS (6)
  1. ALIMTA [Suspect]
     Indication: PLEURAL MESOTHELIOMA MALIGNANT
     Dosage: INTRAVENOUS
     Route: 042
     Dates: start: 20060701, end: 20060701
  2. AVASTIN [Concomitant]
  3. CARBOPLATIN [Concomitant]
  4. FOLIC ACID [Concomitant]
  5. CYANOCOBALAMIN [Concomitant]
  6. CORTICOSTEROID NOS (CORTICOSTEROID NOS) [Concomitant]

REACTIONS (1)
  - BRONCHOSPASM [None]
